FAERS Safety Report 20819233 (Version 1)
Quarter: 2022Q2

REPORT INFORMATION
  Report Type: Spontaneous
  Country: CN (occurrence: None)
  Receive Date: 20220512
  Receipt Date: 20220512
  Transmission Date: 20220720
  Serious: Yes (Other)
  Sender: FDA-Public Use
  Company Number: CN-ROCHE-3095195

PATIENT
  Age: 35 Year
  Sex: Female
  Weight: 60 kg

DRUGS (9)
  1. AVASTIN [Suspect]
     Active Substance: BEVACIZUMAB
     Indication: Rectal cancer
     Dosage: 8-OCT-2020 TO 8-FEB-2021 BEVACIZUMAB + FOLFIRI
     Route: 065
     Dates: start: 20201008
  2. AVASTIN [Suspect]
     Active Substance: BEVACIZUMAB
     Dosage: BEVACIZUMAB + FOLFIRI
     Route: 065
     Dates: start: 20210409, end: 20210726
  3. XELODA [Suspect]
     Active Substance: CAPECITABINE
     Indication: Rectal cancer
     Dosage: (DURING FROM 11-DEC-2019 TO 16-JUN-2020)FOLFOX
     Route: 048
  4. IRINOTECAN HYDROCHLORIDE [Concomitant]
     Active Substance: IRINOTECAN HYDROCHLORIDE
     Indication: Rectal cancer
     Dosage: 08-APR-2020 FOLFOX FOR ONE CYCLE, BUT DUE TO ALLERGY TO OXALIPLATIN, THE PATIENT RECEIVED 5 CYCLES O
     Route: 065
  5. LEUCOVORIN CALCIUM [Concomitant]
     Active Substance: LEUCOVORIN CALCIUM
     Indication: Rectal cancer
     Dosage: BEVACIZUMAB + FOLFIRI (08-OCT-2020 TO 08-FEB-2021; 09-APR-2021 TO 26-JUL-2021)
     Route: 065
  6. OXALIPLATIN [Concomitant]
     Active Substance: OXALIPLATIN
     Indication: Rectal cancer
     Route: 065
  7. NIVOLUMAB [Concomitant]
     Active Substance: NIVOLUMAB
     Route: 065
     Dates: start: 20220316
  8. REGORAFENIB [Concomitant]
     Active Substance: REGORAFENIB
     Route: 065
     Dates: start: 20220316
  9. FLUOROURACIL [Concomitant]
     Active Substance: FLUOROURACIL
     Indication: Rectal cancer
     Route: 065
     Dates: end: 20200618

REACTIONS (1)
  - Myelosuppression [Unknown]

NARRATIVE: CASE EVENT DATE: 20201008
